FAERS Safety Report 4408884-8 (Version None)
Quarter: 2004Q3

REPORT INFORMATION
  Report Type: 
  Country: None (occurrence: None)
  Receive Date: 20040727
  Receipt Date: 20040723
  Transmission Date: 20050211
  Serious: Yes (Other)
  Sender: FDA-Public Use
  Company Number: FR-BRISTOL-MYERS SQUIBB COMPANY-12650891

PATIENT
  Age: 56 Year
  Sex: Male

DRUGS (7)
  1. ELISOR TABS 20 MG [Suspect]
     Route: 048
     Dates: end: 20030701
  2. QUESTRAN [Suspect]
     Route: 048
  3. PLAVIX [Suspect]
     Route: 048
  4. PRAXILENE [Concomitant]
  5. LASIX [Concomitant]
  6. TRANDATE [Concomitant]
  7. HYPERIUM [Concomitant]

REACTIONS (1)
  - BLOOD CREATINE PHOSPHOKINASE INCREASED [None]
